FAERS Safety Report 8790604 (Version 1)
Quarter: 2012Q4

REPORT INFORMATION
  Report Type: 
  Country: US (occurrence: None)
  Receive Date: 20120912
  Receipt Date: 20120912
  Transmission Date: 20130627
  Serious: Yes (Death, Hospitalization)
  Sender: FDA-Public Use
  Company Number: None

PATIENT
  Sex: Male
  Weight: 18.2 kg

DRUGS (5)
  1. DAUNORUBICIN [Suspect]
     Dates: end: 20120829
  2. DEXAMETHASONE [Suspect]
     Dates: end: 20120821
  3. METHOTREXATE [Suspect]
     Dates: end: 20120815
  4. ASPARAGINASE\PEGASPARGASE [Suspect]
     Dates: end: 20120811
  5. VINCRISTINE SULFATE [Suspect]
     Dates: end: 20120829

REACTIONS (7)
  - Acute respiratory distress syndrome [None]
  - Tachycardia [None]
  - Septic shock [None]
  - Disseminated intravascular coagulation [None]
  - Cellulitis [None]
  - Compartment syndrome [None]
  - Necrosis [None]
